FAERS Safety Report 17745512 (Version 1)
Quarter: 2020Q2

REPORT INFORMATION
  Report Type: Spontaneous
  Country: US (occurrence: US)
  Receive Date: 20200505
  Receipt Date: 20200505
  Transmission Date: 20200714
  Serious: Yes (Hospitalization)
  Sender: FDA-Public Use
  Company Number: None

PATIENT
  Age: 56 Year
  Sex: Male
  Weight: 72.57 kg

DRUGS (1)
  1. EMPAGLIFLOZIN (EMPAGLIFLOZIN 25MG TAB) [Suspect]
     Active Substance: EMPAGLIFLOZIN
     Indication: DIABETES MELLITUS
     Route: 048
     Dates: start: 20191231

REACTIONS (5)
  - Pyrexia [None]
  - Diabetic ketoacidosis [None]
  - Nausea [None]
  - Vomiting [None]
  - Hyperglycaemia [None]

NARRATIVE: CASE EVENT DATE: 20200310
